FAERS Safety Report 19988225 (Version 1)
Quarter: 2021Q4

REPORT INFORMATION
  Report Type: Spontaneous
  Country: DE (occurrence: DE)
  Receive Date: 20211022
  Receipt Date: 20211022
  Transmission Date: 20220303
  Serious: Yes (Life-Threatening, Hospitalization, Other)
  Sender: FDA-Public Use
  Company Number: 2021A781200

PATIENT
  Age: 57 Year
  Sex: Female

DRUGS (3)
  1. DAPAGLIFLOZIN [Suspect]
     Active Substance: DAPAGLIFLOZIN
     Route: 048
  2. ENTRESTO [Concomitant]
     Active Substance: SACUBITRIL\VALSARTAN
  3. POTASSIUM [Concomitant]
     Active Substance: POTASSIUM
     Dosage: TWO TIMES A DAY

REACTIONS (3)
  - Ventricular fibrillation [Unknown]
  - Congestive cardiomyopathy [Unknown]
  - Hyperkalaemia [Unknown]
